FAERS Safety Report 26044483 (Version 1)
Quarter: 2025Q4

REPORT INFORMATION
  Report Type: Spontaneous
  Country: GB (occurrence: GB)
  Receive Date: 20251114
  Receipt Date: 20251114
  Transmission Date: 20260118
  Serious: Yes (Other)
  Sender: AUROBINDO
  Company Number: GB-MHRA-MED-202511031647383330-PBGRW

PATIENT
  Age: 70 Year
  Sex: Female
  Weight: 57 kg

DRUGS (1)
  1. FLUOXETINE [Suspect]
     Active Substance: FLUOXETINE HYDROCHLORIDE
     Indication: Adverse drug reaction
     Dosage: 11.6 MILLIGRAM, ONCE A DAY ((MORNING)
     Route: 065

REACTIONS (10)
  - Nervousness [Not Recovered/Not Resolved]
  - Initial insomnia [Recovering/Resolving]
  - Depressed mood [Not Recovered/Not Resolved]
  - Anxiety [Not Recovered/Not Resolved]
  - Dry eye [Not Recovered/Not Resolved]
  - Dry mouth [Not Recovered/Not Resolved]
  - Dizziness [Not Recovered/Not Resolved]
  - Sleep terror [Recovering/Resolving]
  - Cluster headache [Not Recovered/Not Resolved]
  - Occipital neuralgia [Not Recovered/Not Resolved]

NARRATIVE: CASE EVENT DATE: 20220402
